FAERS Safety Report 9810971 (Version 3)
Quarter: 2014Q4

REPORT INFORMATION
  Report Type: Spontaneous
  Country: US (occurrence: US)
  Receive Date: 20140110
  Receipt Date: 20141112
  Transmission Date: 20150529
  Serious: Yes (Other)
  Sender: FDA-Public Use
  Company Number: US-SANOFI-AVENTIS-2013SA023767

PATIENT
  Age: 70 Year

DRUGS (1)
  1. PLAVIX [Suspect]
     Active Substance: CLOPIDOGREL BISULFATE
     Indication: TRANSIENT ISCHAEMIC ATTACK
     Route: 065
     Dates: start: 2002, end: 2011

REACTIONS (6)
  - Amnesia [Unknown]
  - Dysstasia [Unknown]
  - Crying [Unknown]
  - Cerebral haemorrhage [Unknown]
  - Gait disturbance [Unknown]
  - Tremor [Unknown]

NARRATIVE: CASE EVENT DATE: 201103
